FAERS Safety Report 15357729 (Version 6)
Quarter: 2019Q3

REPORT INFORMATION
  Report Type: Report from Study
  Country: US (occurrence: US)
  Receive Date: 20180906
  Receipt Date: 20190708
  Transmission Date: 20191004
  Serious: Yes (Death, Hospitalization, Disabling)
  Sender: FDA-Public Use
  Company Number: US-ACTELION-A-NJ2017-161537

PATIENT
  Age: 75 Year
  Sex: Female

DRUGS (3)
  1. LISINOPRIL. [Concomitant]
     Active Substance: LISINOPRIL
  2. VALSARTAN. [Concomitant]
     Active Substance: VALSARTAN
  3. OPSUMIT [Suspect]
     Active Substance: MACITENTAN
     Indication: PULMONARY ARTERIAL HYPERTENSION
     Dosage: 10 MG, QD
     Route: 048
     Dates: start: 20170607

REACTIONS (12)
  - Hospitalisation [Unknown]
  - Aortic valve replacement [Unknown]
  - Atrial fibrillation [Unknown]
  - Restless legs syndrome [Unknown]
  - Lethargy [Unknown]
  - Cough [Recovered/Resolved]
  - Fatigue [Unknown]
  - Death [Fatal]
  - Weight decreased [Unknown]
  - Cardiac failure [Unknown]
  - Cardiac disorder [Unknown]
  - Fluid retention [Unknown]

NARRATIVE: CASE EVENT DATE: 201804
